FAERS Safety Report 7769738-2 (Version None)
Quarter: 2011Q3

REPORT INFORMATION
  Report Type: 
  Country: None (occurrence: None)
  Receive Date: 20110922
  Receipt Date: 20110201
  Transmission Date: 20111222
  Serious: No
  Sender: FDA-Public Use
  Company Number: US-ASTRAZENECA-2010SE24043

PATIENT
  Age: 56 Year
  Sex: Male
  Weight: 74.8 kg

DRUGS (5)
  1. SEROQUEL [Suspect]
     Indication: BIPOLAR DISORDER
     Route: 048
     Dates: start: 20040101, end: 20090301
  2. TRILEPTAL [Concomitant]
  3. NORTRIPTYLINE HCL [Concomitant]
  4. SEROQUEL [Suspect]
     Route: 048
  5. ATIVAN [Concomitant]

REACTIONS (4)
  - SLEEP DISORDER [None]
  - ANXIETY [None]
  - MUSCLE ENZYME INCREASED [None]
  - ELEVATED MOOD [None]
